FAERS Safety Report 16258062 (Version 2)
Quarter: 2019Q3

REPORT INFORMATION
  Report Type: Spontaneous
  Country: DK (occurrence: DK)
  Receive Date: 20190430
  Receipt Date: 20190701
  Transmission Date: 20191004
  Serious: Yes (Life-Threatening, Hospitalization)
  Sender: FDA-Public Use
  Company Number: DK-MYLANLABS-2019M1040731

PATIENT
  Age: 76 Year
  Sex: Male

DRUGS (1)
  1. MITFORGEN [Suspect]
     Active Substance: METFORMIN HYDROCHLORIDE
     Indication: TYPE 2 DIABETES MELLITUS
     Dosage: STYRKE: 1000 MG.
     Route: 048
     Dates: start: 20180112, end: 20181116

REACTIONS (6)
  - Pallor [Recovered/Resolved]
  - Toxicity to various agents [Recovered/Resolved]
  - Lactic acidosis [Recovered/Resolved]
  - Blood lactic acid increased [Recovered/Resolved]
  - Fatigue [Recovered/Resolved]
  - Blood pH decreased [Recovered/Resolved]

NARRATIVE: CASE EVENT DATE: 201811
